FAERS Safety Report 4463523-5 (Version None)
Quarter: 2004Q3

REPORT INFORMATION
  Report Type: 
  Country: None (occurrence: None)
  Receive Date: 20040928
  Receipt Date: 20040921
  Transmission Date: 20050211
  Serious: Yes (Hospitalization, Other)
  Sender: FDA-Public Use
  Company Number: FRWYE839118JUN04

PATIENT
  Age: 55 Year
  Sex: Female

DRUGS (1)
  1. EFFEXOR [Suspect]
     Indication: DEPRESSION
     Dosage: 50 MG 3X PER 1 DAY ORAL
     Route: 048
     Dates: start: 20040430, end: 20040509

REACTIONS (7)
  - AGITATION [None]
  - CONFUSIONAL STATE [None]
  - DISORIENTATION [None]
  - DISTURBANCE IN ATTENTION [None]
  - FAECAL INCONTINENCE [None]
  - INCOHERENT [None]
  - URINARY INCONTINENCE [None]
